FAERS Safety Report 6583274-0 (Version None)
Quarter: 2010Q1

REPORT INFORMATION
  Report Type: 
  Country: None (occurrence: None)
  Receive Date: 20100216
  Receipt Date: 20100208
  Transmission Date: 20100710
  Serious: Yes (Hospitalization)
  Sender: FDA-Public Use
  Company Number: B0624523B

PATIENT
  Sex: Female
  Weight: 57 kg

DRUGS (5)
  1. TOPOTECAN [Suspect]
     Route: 042
     Dates: start: 20091210
  2. CISPLATIN [Suspect]
     Route: 042
     Dates: start: 20091210
  3. UNKNOWN DRUG [Concomitant]
     Route: 048
  4. ARANESP [Concomitant]
     Dosage: 150MCG PER DAY
     Route: 042
     Dates: start: 20100111, end: 20100111
  5. NEULASTA [Concomitant]
     Dosage: 6MG PER DAY
     Route: 014
     Dates: start: 20100112, end: 20100112

REACTIONS (7)
  - BACTERIAL TEST POSITIVE [None]
  - BLOOD CREATININE INCREASED [None]
  - OEDEMA PERIPHERAL [None]
  - PAIN IN EXTREMITY [None]
  - PARANEOPLASTIC SYNDROME [None]
  - VENOUS THROMBOSIS LIMB [None]
  - WHITE BLOOD CELLS URINE POSITIVE [None]
